FAERS Safety Report 7969144-1 (Version None)
Quarter: 2011Q4

REPORT INFORMATION
  Report Type: 
  Country: None (occurrence: None)
  Receive Date: 20111208
  Receipt Date: 20111120
  Transmission Date: 20120403
  Serious: Yes (Other)
  Sender: FDA-Public Use
  Company Number: US-GDP-11412078

PATIENT
  Sex: Male

DRUGS (1)
  1. EPIDUO [Suspect]
     Indication: ACNE
     Dosage: 1 DF QD TOPICAL
     Route: 061
     Dates: start: 20110818, end: 20110919

REACTIONS (7)
  - PYREXIA [None]
  - ARTHRALGIA [None]
  - RASH [None]
  - JOINT SWELLING [None]
  - LUPUS-LIKE SYNDROME [None]
  - LYMPHADENOPATHY [None]
  - PARALYSIS [None]
